FAERS Safety Report 12817494 (Version 1)
Quarter: 2016Q4

REPORT INFORMATION
  Report Type: Spontaneous
  Country: US (occurrence: US)
  Receive Date: 20161006
  Receipt Date: 20161006
  Transmission Date: 20170207
  Serious: Yes (Other)
  Sender: FDA-Public Use
  Company Number: US-JNJFOC-20160927781

PATIENT
  Age: 20 Year
  Sex: Female
  Weight: 53 kg

DRUGS (2)
  1. ACETAMINOPHEN. [Suspect]
     Active Substance: ACETAMINOPHEN
     Route: 048
  2. ACETAMINOPHEN. [Suspect]
     Active Substance: ACETAMINOPHEN
     Indication: PRODUCT USED FOR UNKNOWN INDICATION
     Dosage: 40 TO 60 TABLETS ONE TIME
     Route: 048
     Dates: start: 20160922, end: 20160922

REACTIONS (4)
  - Prothrombin time prolonged [Recovering/Resolving]
  - Transaminases increased [Not Recovered/Not Resolved]
  - Overdose [Unknown]
  - Suicide attempt [Unknown]

NARRATIVE: CASE EVENT DATE: 20160922
